FAERS Safety Report 7074972-3 (Version None)
Quarter: 2010Q4

REPORT INFORMATION
  Report Type: 
  Country: None (occurrence: None)
  Receive Date: 20101029
  Receipt Date: 20100428
  Transmission Date: 20110411
  Serious: No
  Sender: FDA-Public Use
  Company Number: US-WYE-H10806709

PATIENT
  Age: 29 Year
  Sex: Female
  Weight: 81.27 kg

DRUGS (5)
  1. ADVIL PM [Suspect]
     Indication: INSOMNIA
     Dosage: 2 CAPLETS BEFORE BED
     Route: 048
     Dates: start: 20090822
  2. ADVIL PM [Suspect]
     Indication: PROCEDURAL PAIN
     Dosage: 3 CAPLETS X 1
     Route: 048
     Dates: start: 20090831, end: 20090831
  3. ADVIL PM [Suspect]
     Route: 048
     Dates: start: 20100416, end: 20100418
  4. CELEXA [Concomitant]
  5. ORAL CONTRACEPTIVE NOS [Concomitant]

REACTIONS (2)
  - DRUG INEFFECTIVE [None]
  - OVERDOSE [None]
